FAERS Safety Report 4816657-7 (Version None)
Quarter: 2005Q4

REPORT INFORMATION
  Report Type: 
  Country: None (occurrence: None)
  Receive Date: 20051101
  Receipt Date: 20051017
  Transmission Date: 20060501
  Serious: Yes (Hospitalization)
  Sender: FDA-Public Use
  Company Number: TW-KINGPHARMUSA00001-K200501387

PATIENT
  Age: 4 Day
  Sex: Female
  Weight: 2 kg

DRUGS (3)
  1. EPINEPHRINE [Suspect]
     Dosage: 2 MG, UNK
     Route: 042
  2. RED BLOOD CELLS [Concomitant]
     Indication: ANAEMIA
  3. ANTIBIOTICS [Concomitant]

REACTIONS (13)
  - BLOOD CREATINE PHOSPHOKINASE INCREASED [None]
  - CYANOSIS [None]
  - HYPOKALAEMIA [None]
  - HYPOTENSION [None]
  - INTERCOSTAL RETRACTION [None]
  - MEDICATION ERROR [None]
  - MYOGLOBINURIA [None]
  - OLIGURIA [None]
  - OVERDOSE [None]
  - RENAL FAILURE ACUTE [None]
  - RHABDOMYOLYSIS [None]
  - TACHYCARDIA [None]
  - TACHYPNOEA [None]
